FAERS Safety Report 6662496-4 (Version None)
Quarter: 2010Q1

REPORT INFORMATION
  Report Type: 
  Country: None (occurrence: None)
  Receive Date: 20100331
  Receipt Date: 20100325
  Transmission Date: 20100710
  Serious: Yes (Hospitalization, Disabling, Other)
  Sender: FDA-Public Use
  Company Number: US-MERCK-0911USA03514

PATIENT
  Age: 50 Year
  Sex: Female

DRUGS (1)
  1. FOSAMAX [Suspect]
     Route: 048
     Dates: start: 19950101, end: 20061201

REACTIONS (8)
  - ASTHENIA [None]
  - BONE DISORDER [None]
  - BONE GRAFT [None]
  - FALL [None]
  - FEMUR FRACTURE [None]
  - FRACTURE NONUNION [None]
  - LOW TURNOVER OSTEOPATHY [None]
  - STRESS FRACTURE [None]
